FAERS Safety Report 6656424-5 (Version None)
Quarter: 2010Q1

REPORT INFORMATION
  Report Type: 
  Country: None (occurrence: None)
  Receive Date: 20100329
  Receipt Date: 20100317
  Transmission Date: 20100710
  Serious: Yes (Other)
  Sender: FDA-Public Use
  Company Number: US-AMGEN-US335908

PATIENT
  Sex: Male
  Weight: 79.5 kg

DRUGS (4)
  1. NPLATE [Suspect]
     Indication: IDIOPATHIC THROMBOCYTOPENIC PURPURA
     Route: 065
     Dates: start: 20081002, end: 20081014
  2. CORTICOSTEROID NOS [Concomitant]
     Route: 065
     Dates: start: 20040329
  3. RITUXIMAB [Concomitant]
     Route: 065
     Dates: start: 20080805
  4. VINCRISTINE [Concomitant]
     Route: 065
     Dates: start: 20080819

REACTIONS (1)
  - BLOOD BLISTER [None]
